FAERS Safety Report 7254108-6 (Version None)
Quarter: 2011Q1

REPORT INFORMATION
  Report Type: 
  Country: None (occurrence: None)
  Receive Date: 20110129
  Receipt Date: 20100421
  Transmission Date: 20110831
  Serious: No
  Sender: FDA-Public Use
  Company Number: US-ABBOTT-10P-163-0640389-00

PATIENT
  Sex: Female
  Weight: 105.33 kg

DRUGS (9)
  1. OXYCODONE [Concomitant]
     Indication: PAIN
     Dosage: 5/325 MG
  2. MORPHINE SULFATE [Concomitant]
     Indication: PAIN
  3. TOPAMAX [Concomitant]
     Indication: MIGRAINE
  4. VITAMIN D [Concomitant]
     Indication: VITAMIN D DECREASED
  5. LORAZEPAM [Concomitant]
     Indication: ANXIETY
  6. ENBREL [Concomitant]
  7. VITAMIN B-12 [Concomitant]
     Indication: VITAMIN B12 DEFICIENCY
  8. HUMIRA [Suspect]
     Indication: RHEUMATOID ARTHRITIS
     Dates: start: 20100201, end: 20100301
  9. HUMIRA [Suspect]
     Dates: start: 20100301, end: 20100410

REACTIONS (4)
  - NAUSEA [None]
  - INFLUENZA LIKE ILLNESS [None]
  - DRUG INEFFECTIVE [None]
  - HYPOPHAGIA [None]
